FAERS Safety Report 5255341-5 (Version None)
Quarter: 2007Q1

REPORT INFORMATION
  Report Type: 
  Country: None (occurrence: None)
  Receive Date: 20070305
  Receipt Date: 20070227
  Transmission Date: 20070707
  Serious: Yes (Congenital Anomaly)
  Sender: FDA-Public Use
  Company Number: GB-GLAXOSMITHKLINE-B0460708A

PATIENT
  Sex: Male
  Weight: 2.5 kg

DRUGS (3)
  1. LAMOTRIGINE [Suspect]
  2. KEPPRA [Suspect]
  3. TOPIRAMATE [Suspect]

REACTIONS (4)
  - DRUG EXPOSURE DURING PREGNANCY [None]
  - PREMATURE BABY [None]
  - PYLORIC STENOSIS [None]
  - SMALL FOR DATES BABY [None]
